FAERS Safety Report 10557406 (Version 1)
Quarter: 2014Q4

REPORT INFORMATION
  Report Type: Spontaneous
  Country: AU (occurrence: AU)
  Receive Date: 20141031
  Receipt Date: 20141031
  Transmission Date: 20150529
  Serious: Yes (Hospitalization)
  Sender: FDA-Public Use
  Company Number: AU-009507513-1410AUS011155

PATIENT
  Sex: Female

DRUGS (6)
  1. ZYLOPRIM [Concomitant]
     Active Substance: ALLOPURINOL
     Dosage: UNK
  2. ZOCOR [Suspect]
     Active Substance: SIMVASTATIN
     Indication: BLOOD CHOLESTEROL
     Dosage: DOSE UNSPECIFIED
     Route: 048
     Dates: end: 2014
  3. COLGOUT [Suspect]
     Active Substance: COLCHICINE
     Indication: GOUT
     Dosage: 1.5 MG, 3 TABLETS DAILY
     Route: 048
     Dates: start: 2014, end: 20140717
  4. KEFLEX [Concomitant]
     Active Substance: CEPHALEXIN
     Indication: GOUT
     Dosage: UNK
     Dates: start: 2014, end: 20140718
  5. SLOW-K [Concomitant]
     Active Substance: POTASSIUM CHLORIDE
     Indication: BLOOD POTASSIUM DECREASED
     Dosage: UNK
     Dates: end: 2014
  6. LASIX [Concomitant]
     Active Substance: FUROSEMIDE
     Indication: ELECTROLYTE IMBALANCE
     Dosage: UNK
     Dates: end: 2014

REACTIONS (5)
  - Listless [Unknown]
  - Decreased appetite [Unknown]
  - Muscular weakness [Recovering/Resolving]
  - Asthenia [Unknown]
  - Abdominal pain upper [Unknown]

NARRATIVE: CASE EVENT DATE: 2014
